FAERS Safety Report 8342750-0 (Version None)
Quarter: 2012Q2

REPORT INFORMATION
  Report Type: 
  Country: None (occurrence: None)
  Receive Date: 20120503
  Receipt Date: 20120422
  Transmission Date: 20120825
  Serious: Yes (Other)
  Sender: FDA-Public Use
  Company Number: GGEL20120400510

PATIENT
  Age: 18 Month
  Sex: Female

DRUGS (1)
  1. OXCARBAZEPINE [Suspect]
     Indication: COMPLEX PARTIAL SEIZURES
     Dosage: 14 MG/KG/DAY, ONCE A DAY

REACTIONS (2)
  - INFANTILE SPASMS [None]
  - DEVELOPMENTAL DELAY [None]
